FAERS Safety Report 4751674-7 (Version None)
Quarter: 2005Q3

REPORT INFORMATION
  Report Type: 
  Country: None (occurrence: None)
  Receive Date: 20050824
  Receipt Date: 20041210
  Transmission Date: 20060218
  Serious: Yes (Other)
  Sender: FDA-Public Use
  Company Number: US-KINGPHARMUSA00001-K200401893

PATIENT
  Age: 50 Year
  Sex: Female

DRUGS (5)
  1. DELESTROGEN [Suspect]
     Indication: OVARIAN FAILURE POSTOPERATIVE
     Dosage: 40 MG, QD
     Route: 030
  2. ESTRACE [Suspect]
     Indication: MENOPAUSAL SYMPTOMS
     Dosage: 2 MG, QD
  3. ESTRATEST H.S. [Suspect]
     Indication: MENOPAUSAL SYMPTOMS
  4. PREMARIN [Suspect]
     Indication: MENOPAUSAL SYMPTOMS
  5. PROVERA [Suspect]
     Indication: MENOPAUSAL SYMPTOMS
     Dosage: 2.5 MG, QD

REACTIONS (6)
  - BREAST CANCER [None]
  - HEPATIC NEOPLASM MALIGNANT [None]
  - METASTASIS [None]
  - OESTROGEN RECEPTOR ASSAY POSITIVE [None]
  - PROGESTERONE RECEPTOR ASSAY POSITIVE [None]
  - TUMOUR EMBOLISM [None]
